FAERS Safety Report 13519630 (Version 2)
Quarter: 2017Q2

REPORT INFORMATION
  Report Type: Spontaneous
  Country: US (occurrence: US)
  Receive Date: 20170505
  Receipt Date: 20170601
  Transmission Date: 20170830
  Serious: No
  Sender: FDA-Public Use
  Company Number: US-SHIRE-US201710065

PATIENT
  Sex: Male

DRUGS (1)
  1. ELAPRASE [Suspect]
     Active Substance: IDURSULFASE
     Indication: PRODUCT USED FOR UNKNOWN INDICATION
     Dosage: 36 MG, 1X/WEEK
     Route: 041
     Dates: start: 20100306

REACTIONS (3)
  - Drug dose omission [Unknown]
  - Pyrexia [Unknown]
  - Malaise [Unknown]
